FAERS Safety Report 11557658 (Version 1)
Quarter: 2015Q3

REPORT INFORMATION
  Report Type: Report from Study
  Country: DE (occurrence: DE)
  Receive Date: 20150927
  Receipt Date: 20150927
  Transmission Date: 20151125
  Serious: Yes (Other)
  Sender: FDA-Public Use
  Company Number: DE-009507513-1509DEU013347

PATIENT

DRUGS (3)
  1. RIBAVIRIN. [Suspect]
     Active Substance: RIBAVIRIN
     Indication: CHRONIC HEPATITIS C
     Dosage: UNKNOWN
  2. ALISPORIVIR [Suspect]
     Active Substance: ALISPORIVIR
     Dosage: 400 MG, BID
  3. PEGINTERFERON ALFA-2A [Suspect]
     Active Substance: PEGINTERFERON ALFA-2A
     Indication: CHRONIC HEPATITIS C
     Dosage: UNKNOWN

REACTIONS (5)
  - Abdominal pain [Unknown]
  - Hypertensive crisis [Unknown]
  - Pyrexia [Unknown]
  - Bronchitis [Unknown]
  - Pneumonia [Unknown]
